FAERS Safety Report 8886932 (Version 1)
Quarter: 2012Q4

REPORT INFORMATION
  Report Type: 
  Country: US (occurrence: US)
  Receive Date: 20121105
  Receipt Date: 20121105
  Transmission Date: 20130627
  Serious: Yes (Other)
  Sender: FDA-Public Use
  Company Number: US-PFIZER INC-2012274234

PATIENT
  Age: 54 Year
  Sex: Female
  Weight: 84.3 kg

DRUGS (1)
  1. FLECTOR [Suspect]
     Indication: CHRONIC PAIN
     Dosage: UNK, as needed
     Dates: start: 2009

REACTIONS (4)
  - Fall [Unknown]
  - Lip injury [Unknown]
  - Limb injury [Unknown]
  - Off label use [Unknown]
